FAERS Safety Report 5659373-4 (Version None)
Quarter: 2008Q1

REPORT INFORMATION
  Report Type: 
  Country: None (occurrence: None)
  Receive Date: 20080311
  Receipt Date: 20080222
  Transmission Date: 20080703
  Serious: Yes (Hospitalization, Other)
  Sender: FDA-Public Use
  Company Number: GB-RANBAXY-2008RR-13318

PATIENT

DRUGS (7)
  1. FUROSEMIDE TABLETS BP 40MG [Suspect]
     Dosage: 40 MG, QD
     Route: 048
     Dates: start: 20080104, end: 20080205
  2. SPIRONOLACTONE [Suspect]
     Dosage: 50 MG, QD
     Route: 048
     Dates: start: 20080124, end: 20080205
  3. TIGECYCLINE [Suspect]
     Dosage: 25 MG, BID
     Route: 042
     Dates: start: 20080128, end: 20080204
  4. VANCOMYCIN [Suspect]
     Dosage: 1 G, BID
     Route: 042
     Dates: start: 20080128, end: 20080204
  5. OMEPRAZOLE [Concomitant]
     Dosage: 20 MG, QD
     Route: 048
  6. THIAMINE [Concomitant]
     Dosage: 100 MG, TID
     Route: 048
     Dates: start: 20080124
  7. VITAMIN B CONCENTRATES [Concomitant]
     Dosage: 2 DF, QD
     Route: 048
     Dates: start: 20080124

REACTIONS (2)
  - EOSINOPHIL COUNT INCREASED [None]
  - RASH MACULAR [None]
